FAERS Safety Report 7503537-1 (Version None)
Quarter: 2011Q2

REPORT INFORMATION
  Report Type: 
  Country: None (occurrence: None)
  Receive Date: 20110525
  Receipt Date: 20110518
  Transmission Date: 20111010
  Serious: Yes (Other)
  Sender: FDA-Public Use
  Company Number: GB-ROCHE-777850

PATIENT
  Age: 55 Year
  Sex: Female
  Weight: 134 kg

DRUGS (6)
  1. ATENOLOL [Concomitant]
  2. TAMOXIFEN CITRATE [Concomitant]
  3. PERINDOPRIL ERBUMINE [Concomitant]
  4. HERCEPTIN [Suspect]
     Indication: BREAST CANCER
     Dosage: DRUG WITHDRAWN
     Route: 042
     Dates: start: 20101027, end: 20110413
  5. BENDROFLUAZIDE [Concomitant]
  6. OMEPRAZOLE [Concomitant]

REACTIONS (3)
  - ERYTHEMA MULTIFORME [None]
  - PRURITUS [None]
  - CELLULITIS [None]
